FAERS Safety Report 14432558 (Version 1)
Quarter: 2018Q1

REPORT INFORMATION
  Report Type: Spontaneous
  Country: US (occurrence: US)
  Receive Date: 20180124
  Receipt Date: 20180124
  Transmission Date: 20180509
  Serious: Yes (Other)
  Sender: FDA-Public Use
  Company Number: US-PFIZER INC-2018031230

PATIENT
  Age: 61 Year
  Sex: Male

DRUGS (10)
  1. NEURONTIN [Suspect]
     Active Substance: GABAPENTIN
     Indication: PARAESTHESIA
  2. CALCIUM [Suspect]
     Active Substance: CALCIUM
     Dosage: UNK
  3. LUPRON [Concomitant]
     Active Substance: LEUPROLIDE ACETATE
     Dosage: UNK
  4. NEURONTIN [Suspect]
     Active Substance: GABAPENTIN
     Indication: PAIN IN EXTREMITY
     Dosage: UNK
  5. NEURONTIN [Suspect]
     Active Substance: GABAPENTIN
     Indication: PAIN
  6. MULTIVITAMIN /00097801/ [Concomitant]
     Active Substance: VITAMINS
  7. XTANDI [Suspect]
     Active Substance: ENZALUTAMIDE
     Indication: PROSTATE CANCER
     Dosage: 160 MG, 1X/DAY
     Route: 048
     Dates: start: 20171006
  8. NEURONTIN [Suspect]
     Active Substance: GABAPENTIN
     Indication: GAIT DISTURBANCE
  9. MORPHINE SULFATE. [Concomitant]
     Active Substance: MORPHINE SULFATE
     Dosage: UNK
  10. VITAMIN D /00107901/ [Concomitant]
     Active Substance: ERGOCALCIFEROL
     Dosage: UNK

REACTIONS (16)
  - Nausea [Unknown]
  - Feeling cold [Not Recovered/Not Resolved]
  - Fatigue [Unknown]
  - Product use in unapproved indication [Unknown]
  - Confusional state [Unknown]
  - Dizziness [Unknown]
  - Depression [Unknown]
  - Hot flush [Not Recovered/Not Resolved]
  - Paraesthesia [Not Recovered/Not Resolved]
  - Pain [Not Recovered/Not Resolved]
  - Abdominal discomfort [Recovered/Resolved]
  - Hypoaesthesia [Unknown]
  - Pain in extremity [Unknown]
  - Altered state of consciousness [Unknown]
  - Burning sensation [Not Recovered/Not Resolved]
  - Gait disturbance [Not Recovered/Not Resolved]
